FAERS Safety Report 15044582 (Version 1)
Quarter: 2018Q2

REPORT INFORMATION
  Report Type: Spontaneous
  Country: CN (occurrence: CN)
  Receive Date: 20180621
  Receipt Date: 20180621
  Transmission Date: 20180711
  Serious: Yes (Other)
  Sender: FDA-Public Use
  Company Number: CN-BAYER-2018-112992

PATIENT
  Sex: Male

DRUGS (2)
  1. GLUCOBAY [Suspect]
     Active Substance: ACARBOSE
     Indication: BLOOD GLUCOSE INCREASED
     Dosage: 25 MG, TID
     Route: 048
     Dates: start: 2018
  2. GLUCOBAY [Suspect]
     Active Substance: ACARBOSE
     Indication: BLOOD GLUCOSE INCREASED
     Dosage: UNK
     Route: 048

REACTIONS (3)
  - Cachexia [None]
  - Drug ineffective [None]
  - Underdose [None]

NARRATIVE: CASE EVENT DATE: 2018
